FAERS Safety Report 14338498 (Version 8)
Quarter: 2020Q3

REPORT INFORMATION
  Report Type: Report from Study
  Country: PT (occurrence: PT)
  Receive Date: 20171229
  Receipt Date: 20180809
  Transmission Date: 20201105
  Serious: Yes (Hospitalization, Other)
  Sender: FDA-Public Use
  Company Number: PT-TEVA-2017-PT-836557

PATIENT
  Age: 58 Year
  Sex: Female

DRUGS (26)
  1. VENLAFAXINE [Suspect]
     Active Substance: VENLAFAXINE HYDROCHLORIDE
     Dosage: 150 MG, 1X/DAY
     Route: 048
     Dates: start: 20160907
  2. MEDI4736 [Suspect]
     Active Substance: DURVALUMAB
     Indication: NON-SMALL CELL LUNG CANCER
     Dosage: 20 MG/KG, CYCLIC (ONCE EVERY FOUR WEEKS)
     Route: 042
     Dates: start: 20161104, end: 20161104
  3. SODIUM CITRATE. [Concomitant]
     Active Substance: SODIUM CITRATE
     Indication: CONSTIPATION
     Dosage: 1.00 MICROENEMA PRN
     Route: 054
     Dates: start: 20160928
  4. FENTANYL. [Concomitant]
     Active Substance: FENTANYL
     Indication: PAIN
     Dosage: 50.00 UG EVERY 72H
     Route: 003
     Dates: start: 20160928
  5. NYSTATIN. [Concomitant]
     Active Substance: NYSTATIN
     Indication: MUCOSAL INFLAMMATION
     Dosage: 6 ML DAILY;
     Route: 048
     Dates: start: 20161117
  6. TREMELIMUMAB. [Suspect]
     Active Substance: TREMELIMUMAB
     Dosage: 1 MG/KG, CYCLIC (ONCE EVERY FOUR WEEKS)
     Route: 042
     Dates: start: 20161130, end: 20161130
  7. CLOBAZAM. [Concomitant]
     Active Substance: CLOBAZAM
     Indication: DEPRESSION
     Dosage: 20.00 MG PRN
     Route: 048
     Dates: start: 20160907
  8. TIAMAZOL [Concomitant]
     Indication: THYROID CYST
     Route: 048
     Dates: start: 20160907
  9. VENLAFAXINE [Suspect]
     Active Substance: VENLAFAXINE HYDROCHLORIDE
     Indication: DEPRESSION
     Dosage: 75 MG, UNK
     Route: 048
     Dates: start: 20161229
  10. SENE [Concomitant]
     Indication: CONSTIPATION
     Dosage: 2 DOSAGE FORMS DAILY;
     Route: 048
     Dates: start: 20160928
  11. BISACODIL [Concomitant]
     Indication: CONSTIPATION
     Dosage: 2 DOSAGE FORMS DAILY;
     Route: 048
     Dates: start: 20160928
  12. SUCRALFATE. [Concomitant]
     Active Substance: SUCRALFATE
     Indication: PROPHYLAXIS
     Dosage: 1 DOSAGE FORMS DAILY; 1.00 SACHET QID
     Route: 048
     Dates: start: 20160928
  13. METILPREDNISOLONA [Concomitant]
     Active Substance: METHYLPREDNISOLONE
     Indication: PAIN
     Dosage: .5 DOSAGE FORMS DAILY;
     Route: 048
     Dates: start: 20161021
  14. TREMELIMUMAB. [Suspect]
     Active Substance: TREMELIMUMAB
     Indication: NON-SMALL CELL LUNG CANCER
     Dosage: 1 MG/KG, CYCLIC (ONCE EVERY FOUR WEEKS)
     Route: 042
     Dates: start: 20161104, end: 20161104
  15. SODIUM LAURYL SULFOACETATE [Concomitant]
     Active Substance: SODIUM LAURYL SULFOACETATE
     Indication: CONSTIPATION
     Dosage: 1.00 ENEMA PRN
     Route: 054
     Dates: start: 20160928
  16. THIAMAZOLE [Concomitant]
     Active Substance: METHIMAZOLE
     Indication: THYROID CYST
     Dosage: 5 MILLIGRAM DAILY;
     Route: 048
     Dates: start: 20160907
  17. AMITRIPTILIN [Concomitant]
     Indication: DEPRESSION
     Dosage: 50 MILLIGRAM DAILY;
     Route: 048
     Dates: start: 20160928
  18. VENLAFAXINE HCL [Suspect]
     Active Substance: VENLAFAXINE HYDROCHLORIDE
     Indication: DEPRESSION
     Dosage: 150 MILLIGRAM DAILY;
     Route: 048
     Dates: start: 20160907
  19. MORPHINE SULFATE. [Concomitant]
     Active Substance: MORPHINE SULFATE
     Indication: PAIN
     Dosage: 20.00 MG PRN
     Route: 048
     Dates: start: 20161104
  20. MORPHINE SULFATE. [Concomitant]
     Active Substance: MORPHINE SULFATE
     Dosage: 20.00 MG PRN
     Route: 048
     Dates: start: 20160928
  21. PANTAPRAZOL [Concomitant]
     Indication: PROPHYLAXIS
     Dosage: 40 MILLIGRAM DAILY;
     Route: 048
     Dates: start: 20160928
  22. MEDI4736 [Suspect]
     Active Substance: DURVALUMAB
     Dosage: 20 MG/KG, CYCLIC (ONCE EVERY FOUR WEEKS)
     Route: 042
     Dates: start: 20161130, end: 20161130
  23. GABAPENTIN. [Concomitant]
     Active Substance: GABAPENTIN
     Indication: PAIN
     Dosage: 120 MILLIGRAM DAILY;
     Route: 048
     Dates: start: 20160928
  24. LACTULOSE. [Concomitant]
     Active Substance: LACTULOSE
     Indication: CONSTIPATION
     Dosage: 3 DOSAGE FORMS DAILY; 1.00 SPOON TID
     Route: 048
     Dates: start: 20160928
  25. VENLAFAXINE [Suspect]
     Active Substance: VENLAFAXINE HYDROCHLORIDE
     Dosage: 225 MG, 1X/DAY
     Route: 048
     Dates: start: 20161128
  26. MIRTAZAPIN [Concomitant]
     Active Substance: MIRTAZAPINE
     Indication: DEPRESSION
     Dosage: 30 MILLIGRAM DAILY;
     Route: 048
     Dates: start: 20160907

REACTIONS (1)
  - Drug-induced liver injury [Not Recovered/Not Resolved]

NARRATIVE: CASE EVENT DATE: 20161229
